FAERS Safety Report 11294688 (Version 1)
Quarter: 2015Q3

REPORT INFORMATION
  Report Type: Spontaneous
  Country: US (occurrence: None)
  Receive Date: 20150722
  Receipt Date: 20150722
  Transmission Date: 20151125
  Serious: Yes (Other)
  Sender: FDA-Public Use
  Company Number: None

PATIENT
  Age: 50 Year
  Sex: Female
  Weight: 100.7 kg

DRUGS (1)
  1. LORAZEPAM 0.5MG [Suspect]
     Active Substance: LORAZEPAM
     Indication: GENERALISED ANXIETY DISORDER
     Route: 048
     Dates: start: 201411

REACTIONS (2)
  - Hypoaesthesia [None]
  - Presyncope [None]

NARRATIVE: CASE EVENT DATE: 201411
